FAERS Safety Report 20000760 (Version 1)
Quarter: 2021Q4

REPORT INFORMATION
  Report Type: Spontaneous
  Country: US (occurrence: US)
  Receive Date: 20211026
  Receipt Date: 20211026
  Transmission Date: 20220303
  Serious: Yes (Hospitalization)
  Sender: FDA-Public Use
  Company Number: None

PATIENT
  Age: 60 Year
  Sex: Female

DRUGS (24)
  1. ORENCIA [Suspect]
     Active Substance: ABATACEPT
     Indication: Rheumatoid arthritis
     Route: 058
     Dates: start: 20150606
  2. ALBUTEROL [Concomitant]
     Active Substance: ALBUTEROL
  3. BUPROPION TAB [Concomitant]
  4. CALCIUM CIT TAB [Concomitant]
  5. CARISOPRODOL TAB [Concomitant]
  6. DICYCLOMINE TAB [Concomitant]
  7. DILTIAZEM CAP [Concomitant]
  8. ENULOSE SOL [Concomitant]
  9. FAMOTIDINE [Concomitant]
     Active Substance: FAMOTIDINE
  10. GABAPENTIN [Concomitant]
     Active Substance: GABAPENTIN
  11. IBUPROFE TAB [Concomitant]
  12. LAMICTAL TAB [Concomitant]
  13. LAMOTRIGINE [Concomitant]
     Active Substance: LAMOTRIGINE
  14. LORATADINE TAB [Concomitant]
  15. METHYLPRED TAB [Concomitant]
  16. MULTIVITAMIN TAB [Concomitant]
  17. OMEPRAZOLE [Concomitant]
     Active Substance: OMEPRAZOLE
  18. PROAIR HFA [Concomitant]
     Active Substance: ALBUTEROL SULFATE
  19. SUCRALFATE TAB [Concomitant]
  20. TIZANIDINE TAB [Concomitant]
  21. TYLENOL TAB [Concomitant]
  22. VITAMIN B-12 TAB [Concomitant]
  23. VITAMIN D2 TAB [Concomitant]
  24. VITAMIN D3 [Concomitant]
     Active Substance: CHOLECALCIFEROL

REACTIONS (2)
  - Urinary tract infection [None]
  - Pneumonia [None]

NARRATIVE: CASE EVENT DATE: 20211001
